FAERS Safety Report 10313314 (Version 1)
Quarter: 2014Q3

REPORT INFORMATION
  Report Type: Spontaneous
  Country: US (occurrence: None)
  Receive Date: 20140716
  Receipt Date: 20140716
  Transmission Date: 20150326
  Serious: Yes (Death, Other)
  Sender: FDA-Public Use
  Company Number: SYM-2014-22760

PATIENT
  Age: 25 Year
  Sex: Female
  Weight: 90.72 kg

DRUGS (10)
  1. DILAUDID [Suspect]
     Active Substance: HYDROMORPHONE HYDROCHLORIDE
     Indication: ABDOMINAL PAIN UPPER
     Dates: start: 20110225
  2. ABILIFY [Suspect]
     Active Substance: ARIPIPRAZOLE
     Indication: PRODUCT USED FOR UNKNOWN INDICATION
  3. CYMBALTA [Suspect]
     Active Substance: DULOXETINE HYDROCHLORIDE
     Indication: ABDOMINAL PAIN UPPER
     Dates: start: 20110225
  4. LORAZEPAM(LORAZEPAM) [Suspect]
     Active Substance: LORAZEPAM
     Indication: ABDOMINAL PAIN UPPER
     Dates: start: 20110225
  5. PROMETHAZINE [Suspect]
     Active Substance: PROMETHAZINE\PROMETHAZINE HYDROCHLORIDE
     Indication: ABDOMINAL PAIN UPPER
  6. KLONOPIN [Suspect]
     Active Substance: CLONAZEPAM
     Indication: ABDOMINAL PAIN UPPER
     Dates: start: 20110225
  7. TORADOL [Suspect]
     Active Substance: KETOROLAC TROMETHAMINE
     Indication: ABDOMINAL PAIN UPPER
     Dates: start: 20110225
  8. FENTANYL(FENTANYL) [Concomitant]
     Active Substance: FENTANYL CITRATE
  9. ZOLOFT [Suspect]
     Active Substance: SERTRALINE HYDROCHLORIDE
     Indication: ABDOMINAL PAIN UPPER
  10. PHENERGAN [Suspect]
     Active Substance: PROMETHAZINE HYDROCHLORIDE
     Indication: ABDOMINAL PAIN UPPER
     Dates: start: 20110225

REACTIONS (2)
  - Abnormal behaviour [None]
  - Toxicity to various agents [None]

NARRATIVE: CASE EVENT DATE: 20120227
